FAERS Safety Report 6328697-X (Version None)
Quarter: 2009Q3

REPORT INFORMATION
  Report Type: 
  Country: None (occurrence: None)
  Receive Date: 20090826
  Receipt Date: 20090819
  Transmission Date: 20100115
  Serious: Yes (Hospitalization, Other)
  Sender: FDA-Public Use
  Company Number: PHHY2009BR35352

PATIENT
  Sex: Female

DRUGS (7)
  1. EXFORGE [Suspect]
     Indication: HYPERTENSION
     Dosage: 1 TABLET (160/5) IN MORNING
     Route: 048
     Dates: start: 20050801
  2. EXFORGE [Suspect]
     Dosage: 320/10 MG/DAY
  3. PURAN T4 [Concomitant]
     Indication: THYROID DISORDER
     Dosage: 1 TABLET IN MORNING
     Route: 048
     Dates: start: 20010101
  4. PANTOPRAZOLE SODIUM [Concomitant]
     Indication: ABDOMINAL DISCOMFORT
     Dosage: 1 TABLET IN FASTING
     Route: 048
     Dates: start: 20010101
  5. CITALOPRAM [Concomitant]
     Indication: DEPRESSION
     Dosage: 1 TABLET/DAY
     Route: 048
     Dates: start: 20010101
  6. BROMAZEPAM [Concomitant]
     Indication: SLEEP DISORDER
     Dosage: 1 TABLET/NIGHT
     Route: 048
  7. ROUTINOL [Concomitant]
     Indication: SLEEP DISORDER
     Dosage: 1 TABLET/NIGHT
     Route: 048

REACTIONS (4)
  - ARRHYTHMIA [None]
  - BLOOD PRESSURE INCREASED [None]
  - CARDIAC DISORDER [None]
  - DRUG INEFFECTIVE [None]
